FAERS Safety Report 5049428-X (Version None)
Quarter: 2006Q3

REPORT INFORMATION
  Report Type: 
  Country: None (occurrence: None)
  Receive Date: 20060712
  Receipt Date: 20060105
  Transmission Date: 20061208
  Serious: Yes (Other)
  Sender: FDA-Public Use
  Company Number: US-ROCHE-431089

PATIENT
  Age: 55 Year
  Sex: Female

DRUGS (2)
  1. PEGASYS [Suspect]
     Dosage: ROUTE REPORTED AS: INJ.
     Route: 050
  2. COPEGUS [Suspect]
     Route: 048
     Dates: start: 20051025, end: 20051215

REACTIONS (9)
  - ANAEMIA [None]
  - DYSPHAGIA [None]
  - FATIGUE [None]
  - GASTRITIS [None]
  - GASTROOESOPHAGEAL REFLUX DISEASE [None]
  - HIATUS HERNIA [None]
  - INSOMNIA [None]
  - MALNUTRITION [None]
  - RASH PRURITIC [None]
